FAERS Safety Report 6609795-X (Version None)
Quarter: 2010Q1

REPORT INFORMATION
  Report Type: 
  Country: None (occurrence: None)
  Receive Date: 20100302
  Receipt Date: 20100222
  Transmission Date: 20100710
  Serious: Yes (Other)
  Sender: FDA-Public Use
  Company Number: TR-ELI_LILLY_AND_COMPANY-TR200911000758

PATIENT
  Sex: Female

DRUGS (4)
  1. HUMULIN R [Suspect]
     Indication: DIABETES MELLITUS
     Dosage: 30 IU, EACH MORNING
     Route: 058
     Dates: start: 20090422, end: 20100205
  2. HUMULIN R [Suspect]
     Dosage: 30 IU, OTHER
     Route: 058
     Dates: start: 20090422, end: 20100205
  3. HUMULIN R [Suspect]
     Dosage: 30 IU, EACH EVENING
     Route: 058
     Dates: start: 20090422, end: 20100205
  4. HUMULIN N [Suspect]
     Indication: DIABETES MELLITUS
     Dosage: 28 IU, DAILY (1/D)
     Route: 058
     Dates: start: 20090422, end: 20100205

REACTIONS (2)
  - ABORTION [None]
  - DRUG EXPOSURE DURING PREGNANCY [None]
